FAERS Safety Report 9802135 (Version 2)
Quarter: 2014Q2

REPORT INFORMATION
  Report Type: Report from Study
  Country: US (occurrence: US)
  Receive Date: 20140107
  Receipt Date: 20140620
  Transmission Date: 20141212
  Serious: Yes (Hospitalization)
  Sender: FDA-Public Use
  Company Number: US-ABBVIE-14P-163-1186223-00

PATIENT
  Age: 21 Year
  Sex: Female

DRUGS (2)
  1. HUMIRA [Suspect]
     Indication: CROHN^S DISEASE
     Dates: start: 20131004
  2. GENERIC CLARITIN [Concomitant]
     Indication: HYPERSENSITIVITY

REACTIONS (3)
  - Abdominal distension [Recovering/Resolving]
  - Crohn^s disease [Recovering/Resolving]
  - Vomiting [Recovering/Resolving]
